FAERS Safety Report 8583966-8 (Version None)
Quarter: 2012Q3

REPORT INFORMATION
  Report Type: 
  Country: None (occurrence: None)
  Receive Date: 20120810
  Receipt Date: 20120806
  Transmission Date: 20120928
  Serious: Yes (Hospitalization, Other)
  Sender: FDA-Public Use
  Company Number: US-MERCK-0912USA03686

PATIENT

DRUGS (15)
  1. CARDIZEM SR [Concomitant]
     Dosage: 90 MG, BID
  2. FOSAMAX [Suspect]
     Dosage: 70 MG, QW
     Route: 048
     Dates: start: 20051201
  3. GLYBURIDE [Concomitant]
     Indication: TYPE 2 DIABETES MELLITUS
  4. MK-0805 [Concomitant]
  5. ASPIRIN [Concomitant]
     Dosage: 81 MG, QD
  6. TAGAMET [Concomitant]
  7. FOSAMAX [Suspect]
     Dosage: 70 MG, QW
     Route: 048
     Dates: start: 20000101, end: 20090601
  8. OGEN [Concomitant]
  9. FOSAMAX [Suspect]
     Dosage: 10 MG, QD
     Route: 048
     Dates: start: 20020123, end: 20040121
  10. EFFEXOR [Concomitant]
     Indication: DEPRESSION
     Dosage: 37.5 MG, QPM
     Route: 048
  11. CARTIA XT [Concomitant]
  12. FOSAMAX [Suspect]
     Indication: OSTEOPOROSIS
     Dosage: 10 MG, QD
     Route: 048
     Dates: start: 19950101
  13. FOSAMAX [Suspect]
     Dosage: 70 MG, QW
     Route: 048
     Dates: start: 20080414, end: 20090619
  14. LEVSINEX TIMECAPS [Concomitant]
  15. MK-9025 [Concomitant]
     Dates: start: 19970425

REACTIONS (39)
  - FALL [None]
  - MONOPLEGIA [None]
  - BREAST CYST [None]
  - DYSPHAGIA [None]
  - RHEUMATOID ARTHRITIS [None]
  - FEMUR FRACTURE [None]
  - OSTEOARTHRITIS [None]
  - BURSITIS [None]
  - EXOSTOSIS [None]
  - FOOT FRACTURE [None]
  - MUSCLE SPASMS [None]
  - HEPATITIS B [None]
  - INTERVERTEBRAL DISC DEGENERATION [None]
  - GASTRITIS [None]
  - ANAEMIA POSTOPERATIVE [None]
  - DEPRESSION [None]
  - FRACTURE NONUNION [None]
  - BACK PAIN [None]
  - ABDOMINAL PAIN [None]
  - HEPATITIS A [None]
  - OESOPHAGITIS [None]
  - WEIGHT INCREASED [None]
  - ASTHMA [None]
  - HAEMORRHAGIC DIATHESIS [None]
  - OEDEMA PERIPHERAL [None]
  - SALIVARY GLAND CALCULUS [None]
  - MYOCARDIAL ISCHAEMIA [None]
  - HAEMORRHOIDS [None]
  - MUSCLE STRAIN [None]
  - FRACTURE DELAYED UNION [None]
  - GROIN PAIN [None]
  - LACERATION [None]
  - WEIGHT DECREASED [None]
  - FLANK PAIN [None]
  - ANXIETY [None]
  - SUICIDAL IDEATION [None]
  - ATROPHY [None]
  - ARTHRALGIA [None]
  - CONTUSION [None]
